FAERS Safety Report 7440506-4 (Version None)
Quarter: 2011Q2

REPORT INFORMATION
  Report Type: 
  Country: None (occurrence: None)
  Receive Date: 20110427
  Receipt Date: 20110425
  Transmission Date: 20111010
  Serious: Yes (Hospitalization)
  Sender: FDA-Public Use
  Company Number: BR-ABBOTT-11P-020-0721554-00

PATIENT
  Sex: Female
  Weight: 72 kg

DRUGS (4)
  1. OMEPRAZOLE [Concomitant]
     Indication: GASTRIC DISORDER
     Route: 048
  2. OMEPRAZOLE [Concomitant]
     Indication: PROPHYLAXIS
  3. AZACORT [Concomitant]
     Indication: RHEUMATOID ARTHRITIS
     Route: 048
     Dates: start: 20091001
  4. HUMIRA [Suspect]
     Indication: RHEUMATOID ARTHRITIS
     Route: 058
     Dates: start: 20091001

REACTIONS (6)
  - HAEMOPTYSIS [None]
  - NASOPHARYNGITIS [None]
  - COUGH [None]
  - WEIGHT INCREASED [None]
  - PULMONARY OEDEMA [None]
  - BACK PAIN [None]
